FAERS Safety Report 25371174 (Version 2)
Quarter: 2025Q2

REPORT INFORMATION
  Report Type: Report from Study
  Country: CA (occurrence: CA)
  Receive Date: 20250529
  Receipt Date: 20250618
  Transmission Date: 20250716
  Serious: Yes (Hospitalization, Other)
  Sender: ABBVIE
  Company Number: CA-ABBVIE-6295642

PATIENT
  Age: 14 Year
  Sex: Male

DRUGS (7)
  1. RINVOQ [Suspect]
     Active Substance: UPADACITINIB
     Indication: Crohn^s disease
     Dosage: THIRD DOSE, FOR 12 WEEKS, BY INCREASED DOSE
     Route: 048
     Dates: start: 20240731, end: 202410
  2. RINVOQ [Suspect]
     Active Substance: UPADACITINIB
     Indication: Crohn^s disease
     Dosage: SECOND DOSE, REDUCTION TO 30MG DAILY
     Route: 048
  3. RINVOQ [Suspect]
     Active Substance: UPADACITINIB
     Indication: Crohn^s disease
     Dosage: FIRST DOSE
     Route: 048
  4. RINVOQ [Suspect]
     Active Substance: UPADACITINIB
     Indication: Crohn^s disease
     Dosage: FOURTH DOSE.?AROUND MID OCT 2024
     Route: 048
     Dates: start: 202410
  5. RINVOQ [Suspect]
     Active Substance: UPADACITINIB
     Indication: Crohn^s disease
     Dosage: FIFTH DOSE, INCREASED BACK TO 45MG
     Route: 048
     Dates: start: 202411
  6. RINVOQ [Suspect]
     Active Substance: UPADACITINIB
     Indication: Crohn^s disease
     Route: 048
  7. PREDNISONE [Concomitant]
     Active Substance: PREDNISONE
     Indication: Product used for unknown indication

REACTIONS (11)
  - Acute kidney injury [Unknown]
  - Crohn^s disease [Recovered/Resolved]
  - Viral upper respiratory tract infection [Recovered/Resolved]
  - Haematuria [Unknown]
  - Colitis [Not Recovered/Not Resolved]
  - Hyperaemia [Unknown]
  - Gastrointestinal wall thickening [Not Recovered/Not Resolved]
  - Large intestinal ulcer [Unknown]
  - Gastrointestinal disorder [Unknown]
  - Ileal ulcer [Unknown]
  - Dehydration [Unknown]

NARRATIVE: CASE EVENT DATE: 20241128
